FAERS Safety Report 16957115 (Version 2)
Quarter: 2020Q1

REPORT INFORMATION
  Report Type: Spontaneous
  Country: US (occurrence: US)
  Receive Date: 20191024
  Receipt Date: 20200320
  Transmission Date: 20200409
  Serious: Yes (Other)
  Sender: FDA-Public Use
  Company Number: US-BIOCODEX SA-201901346

PATIENT

DRUGS (10)
  1. DIACOMIT [Suspect]
     Active Substance: STIRIPENTOL
     Dosage: 1500 MG TWICE DAILY
     Route: 065
  2. METFORMIN HYDROCHLORIDE. [Concomitant]
     Active Substance: METFORMIN HYDROCHLORIDE
     Indication: PRODUCT USED FOR UNKNOWN INDICATION
     Route: 065
  3. NOVOLOG [Concomitant]
     Active Substance: INSULIN ASPART
     Indication: PRODUCT USED FOR UNKNOWN INDICATION
     Route: 065
  4. CLOBAZAM. [Concomitant]
     Active Substance: CLOBAZAM
     Indication: SEVERE MYOCLONIC EPILEPSY OF INFANCY
     Route: 065
  5. ONFI [Concomitant]
     Active Substance: CLOBAZAM
     Indication: SEVERE MYOCLONIC EPILEPSY OF INFANCY
     Route: 065
  6. AMPHETAMINE SULFATE. [Concomitant]
     Active Substance: AMPHETAMINE SULFATE
     Indication: PRODUCT USED FOR UNKNOWN INDICATION
     Route: 065
  7. EPIDIOLEX [Concomitant]
     Active Substance: CANNABIDIOL
     Indication: PRODUCT USED FOR UNKNOWN INDICATION
     Route: 065
  8. GLIPIZIDE. [Concomitant]
     Active Substance: GLIPIZIDE
     Indication: PRODUCT USED FOR UNKNOWN INDICATION
     Route: 065
  9. GLUCAGON. [Concomitant]
     Active Substance: GLUCAGON
     Indication: PRODUCT USED FOR UNKNOWN INDICATION
     Route: 065
  10. DIACOMIT [Suspect]
     Active Substance: STIRIPENTOL
     Indication: SEVERE MYOCLONIC EPILEPSY OF INFANCY
     Dosage: 500 MG, QD
     Route: 065
     Dates: start: 20190924

REACTIONS (3)
  - Product dose omission [Unknown]
  - Seizure [Unknown]
  - Somnolence [Unknown]
